FAERS Safety Report 7797241-2 (Version None)
Quarter: 2011Q4

REPORT INFORMATION
  Report Type: 
  Country: None (occurrence: None)
  Receive Date: 20111005
  Receipt Date: 20110928
  Transmission Date: 20120403
  Serious: Yes (Other)
  Sender: FDA-Public Use
  Company Number: JP-PFIZER INC-2011230395

PATIENT
  Age: 12 Year
  Sex: Male

DRUGS (2)
  1. LEVOTHYROXINE SODIUM [Concomitant]
     Dosage: 15 MICROG
  2. SOMATROPIN [Suspect]
     Indication: HYPOPITUITARISM
     Route: 058

REACTIONS (1)
  - THYROIDITIS [None]
